FAERS Safety Report 15753485 (Version 1)
Quarter: 2018Q4

REPORT INFORMATION
  Report Type: Spontaneous
  Country: US (occurrence: US)
  Receive Date: 20181222
  Receipt Date: 20181222
  Transmission Date: 20190205
  Serious: No
  Sender: FDA-Public Use
  Company Number: US-MALLINCKRODT-T201802695

PATIENT
  Age: 5 Decade
  Sex: Female

DRUGS (1)
  1. FENTANYL TRANSDERMAL SYSTEM [Suspect]
     Active Substance: FENTANYL
     Indication: PRODUCT USED FOR UNKNOWN INDICATION
     Dosage: UNK
     Route: 062

REACTIONS (6)
  - Dry skin [Unknown]
  - Treatment noncompliance [Unknown]
  - Scab [Unknown]
  - Retching [Unknown]
  - Skin wound [Unknown]
  - Nausea [Unknown]
